FAERS Safety Report 9897357 (Version 1)
Quarter: 2014Q1

REPORT INFORMATION
  Report Type: Report from Study
  Country: CA (occurrence: CA)
  Receive Date: 20140214
  Receipt Date: 20140214
  Transmission Date: 20141002
  Serious: Yes (Hospitalization)
  Sender: FDA-Public Use
  Company Number: CA-JNJFOC-20140205703

PATIENT
  Age: 28 Year
  Sex: Female
  Weight: 52.1 kg

DRUGS (2)
  1. REMICADE [Suspect]
     Indication: CROHN^S DISEASE
     Route: 042
     Dates: start: 20060101
  2. WELLBUTRIN [Concomitant]
     Route: 065

REACTIONS (1)
  - Intestinal stenosis [Unknown]
